FAERS Safety Report 25588965 (Version 1)
Quarter: 2025Q3

REPORT INFORMATION
  Report Type: Spontaneous
  Country: US (occurrence: US)
  Receive Date: 20250722
  Receipt Date: 20250722
  Transmission Date: 20251020
  Serious: Yes (Death)
  Sender: KARYOPHARM THERAPEUTICS
  Company Number: US-KARYOPHARM-2025KPT100514

PATIENT

DRUGS (13)
  1. SELINEXOR [Suspect]
     Active Substance: SELINEXOR
     Indication: Plasma cell myeloma
     Route: 048
     Dates: start: 20250614
  2. TEMAZEPAM [Concomitant]
     Active Substance: TEMAZEPAM
  3. ACYCLOVIR [Concomitant]
     Active Substance: ACYCLOVIR
  4. ZOFRAN [Concomitant]
     Active Substance: ONDANSETRON HYDROCHLORIDE
  5. ISATUXIMAB [Concomitant]
     Active Substance: ISATUXIMAB
  6. KYPROLIS [Concomitant]
     Active Substance: CARFILZOMIB
  7. MEDROL [Concomitant]
     Active Substance: METHYLPREDNISOLONE
  8. DEXAMETHASONE [Concomitant]
     Active Substance: DEXAMETHASONE
  9. OXYCODONE [Concomitant]
     Active Substance: OXYCODONE
  10. PERCOCET [Concomitant]
     Active Substance: ACETAMINOPHEN\OXYCODONE HYDROCHLORIDE
  11. OLANZAPINE [Concomitant]
     Active Substance: OLANZAPINE
  12. THALOMID [Concomitant]
     Active Substance: THALIDOMIDE
  13. POMALYST [Concomitant]
     Active Substance: POMALIDOMIDE

REACTIONS (1)
  - Death [Fatal]

NARRATIVE: CASE EVENT DATE: 20250714
